FAERS Safety Report 4855594-9 (Version None)
Quarter: 2005Q4

REPORT INFORMATION
  Report Type: 
  Country: None (occurrence: None)
  Receive Date: 20051214
  Receipt Date: 20051124
  Transmission Date: 20060501
  Serious: Yes (Other)
  Sender: FDA-Public Use
  Company Number: S05-CAN-05653-01

PATIENT
  Sex: Male

DRUGS (1)
  1. MEMANTINE HCL [Suspect]
     Dosage: 10 MG BID PO
     Route: 048

REACTIONS (2)
  - MEDICATION ERROR [None]
  - TREMOR [None]
